FAERS Safety Report 17025640 (Version 9)
Quarter: 2020Q2

REPORT INFORMATION
  Report Type: Spontaneous
  Country: US (occurrence: US)
  Receive Date: 20191113
  Receipt Date: 20200602
  Transmission Date: 20200713
  Serious: Yes (Hospitalization, Other)
  Sender: FDA-Public Use
  Company Number: US-PFIZER INC-2019478414

PATIENT
  Age: 74 Year
  Sex: Female
  Weight: 73 kg

DRUGS (8)
  1. IBRANCE [Suspect]
     Active Substance: PALBOCICLIB
     Indication: BREAST CANCER STAGE IV
     Dosage: 125 MG, 1X/DAY
  2. IBRANCE [Suspect]
     Active Substance: PALBOCICLIB
     Dosage: 125 MG, UNK
     Dates: start: 20191216, end: 20191224
  3. IBRANCE [Suspect]
     Active Substance: PALBOCICLIB
     Dosage: 100 MG, UNK
     Dates: start: 20200128
  4. IBRANCE [Suspect]
     Active Substance: PALBOCICLIB
     Dosage: 125 MG, CYCLIC (1 A DAY FOR 21 DAYS)
     Dates: start: 20191102, end: 20191122
  5. ANASTROZOLE. [Concomitant]
     Active Substance: ANASTROZOLE
     Dosage: 1 MG, 1X/DAY
     Dates: start: 20191120
  6. IBRANCE [Suspect]
     Active Substance: PALBOCICLIB
     Dosage: 125 MG, 1X/DAY (TOOK 2/DAYS)
     Dates: start: 20191105, end: 20191106
  7. IBRANCE [Suspect]
     Active Substance: PALBOCICLIB
     Dosage: 100 MG, UNK
     Dates: start: 20191230, end: 20200119
  8. IBRANCE [Suspect]
     Active Substance: PALBOCICLIB
     Dosage: 125 MG, 1X/DAY
     Dates: start: 20191203, end: 20191209

REACTIONS (7)
  - Visual impairment [Unknown]
  - Pulmonary oedema [Unknown]
  - Chest pain [Unknown]
  - Blood count abnormal [Recovered/Resolved]
  - Dyspnoea [Unknown]
  - Anxiety [Recovered/Resolved]
  - Eye disorder [Unknown]
